FAERS Safety Report 13817795 (Version 1)
Quarter: 2017Q3

REPORT INFORMATION
  Report Type: Other
  Country: GB (occurrence: GB)
  Receive Date: 20170731
  Receipt Date: 20170731
  Transmission Date: 20171127
  Serious: Yes (Other)
  Sender: FDA-Public Use
  Company Number: GB-TAKEDA-2017TEU003238

PATIENT
  Age: 73 Year
  Sex: Male
  Weight: 127 kg

DRUGS (9)
  1. EPROSARTAN [Concomitant]
     Active Substance: EPROSARTAN
     Dosage: UNK UNK, QD
     Dates: start: 20160921
  2. BISOPROLOL [Concomitant]
     Active Substance: BISOPROLOL
     Dosage: UNK UNK, QD
     Dates: start: 20161007
  3. ALOGLIPTIN. [Suspect]
     Active Substance: ALOGLIPTIN
     Indication: PRODUCT USED FOR UNKNOWN INDICATION
     Dosage: UNK
     Route: 065
     Dates: start: 20170525
  4. PIOGLITAZONE. [Concomitant]
     Active Substance: PIOGLITAZONE
     Dosage: UNK UNK, QD
     Dates: start: 20170719
  5. CETRABEN                           /01690401/ [Concomitant]
     Indication: DRY SKIN PROPHYLAXIS
     Dosage: UNK
     Dates: start: 20170412
  6. GLUCOPHAGE [Concomitant]
     Active Substance: METFORMIN HYDROCHLORIDE
     Dosage: UNK UNK, QD
     Dates: start: 20160921
  7. ATORVASTATIN [Concomitant]
     Active Substance: ATORVASTATIN
     Indication: BLOOD CHOLESTEROL INCREASED
     Dosage: UNK UNK, QD
     Dates: start: 20170412
  8. MOMETASONE [Concomitant]
     Active Substance: MOMETASONE
     Indication: PRURITUS
     Dosage: UNK
     Route: 061
     Dates: start: 20160921
  9. WARFARIN SODIUM. [Concomitant]
     Active Substance: WARFARIN SODIUM
     Dosage: UNK
     Dates: start: 20170324

REACTIONS (8)
  - Glossodynia [Unknown]
  - Dry mouth [Unknown]
  - Asthenia [Unknown]
  - Nausea [Unknown]
  - Feeling abnormal [Unknown]
  - Diabetes mellitus inadequate control [Unknown]
  - Pain in extremity [Unknown]
  - Decreased interest [Unknown]

NARRATIVE: CASE EVENT DATE: 20170719
